FAERS Safety Report 6917785-2 (Version None)
Quarter: 2010Q3

REPORT INFORMATION
  Report Type: 
  Country: None (occurrence: None)
  Receive Date: 20100810
  Receipt Date: 20100729
  Transmission Date: 20110219
  Serious: Yes (Death, Hospitalization)
  Sender: FDA-Public Use
  Company Number: BR-PFIZER INC-2010096493

PATIENT
  Age: 61 Year
  Sex: Male

DRUGS (1)
  1. VIAGRA [Suspect]
     Dosage: UNK
     Route: 048

REACTIONS (2)
  - CEREBROVASCULAR ACCIDENT [None]
  - COMA [None]
